FAERS Safety Report 4985789-5 (Version None)
Quarter: 2006Q2

REPORT INFORMATION
  Report Type: 
  Country: None (occurrence: None)
  Receive Date: 20060421
  Receipt Date: 20060410
  Transmission Date: 20061013
  Serious: Yes (Other)
  Sender: FDA-Public Use
  Company Number: 2006S1000088

PATIENT
  Age: 60 Year
  Sex: Male

DRUGS (1)
  1. ACITRETIN [Suspect]
     Indication: PUSTULAR PSORIASIS
     Dosage: 25 MG; QD; PO
     Route: 048
     Dates: start: 20060201

REACTIONS (1)
  - PROTHROMBIN LEVEL INCREASED [None]
